FAERS Safety Report 24399641 (Version 2)
Quarter: 2024Q4

REPORT INFORMATION
  Report Type: Report from Study
  Country: US (occurrence: US)
  Receive Date: 20241005
  Receipt Date: 20241119
  Transmission Date: 20250115
  Serious: Yes (Hospitalization, Other)
  Sender: ALEXION PHARMACEUTICALS
  Company Number: US-AstraZeneca-CH-00713520A

PATIENT

DRUGS (1)
  1. EPLONTERSEN SODIUM [Suspect]
     Active Substance: EPLONTERSEN SODIUM
     Indication: Product used for unknown indication
     Dosage: 45 MILLIGRAM, Q4W

REACTIONS (3)
  - Hypertension [Unknown]
  - Asthenia [Unknown]
  - Atrial fibrillation [Unknown]
